FAERS Safety Report 7215054-7 (Version None)
Quarter: 2011Q1

REPORT INFORMATION
  Report Type: 
  Country: None (occurrence: None)
  Receive Date: 20110107
  Receipt Date: 20100729
  Transmission Date: 20110831
  Serious: No
  Sender: FDA-Public Use
  Company Number: A0872967A

PATIENT
  Age: 46 Year
  Sex: Male

DRUGS (2)
  1. LOVAZA [Suspect]
     Route: 048
     Dates: start: 20100726
  2. NEXIUM [Concomitant]

REACTIONS (5)
  - NAUSEA [None]
  - ABDOMINAL DISTENSION [None]
  - PAIN [None]
  - DYSPEPSIA [None]
  - DIZZINESS [None]
